FAERS Safety Report 16030986 (Version 5)
Quarter: 2019Q3

REPORT INFORMATION
  Report Type: Spontaneous
  Country: US (occurrence: US)
  Receive Date: 20190304
  Receipt Date: 20190920
  Transmission Date: 20191004
  Serious: Yes (Other)
  Sender: FDA-Public Use
  Company Number: US-PFIZER INC-2019082853

PATIENT
  Age: 73 Year
  Sex: Female
  Weight: 200 kg

DRUGS (10)
  1. VITAMIN B12 [Concomitant]
     Active Substance: CYANOCOBALAMIN
     Dosage: UNK, 1X/DAY (IN A.M.)
  2. GARDEN OF LIFE PROBIOTICS [Concomitant]
     Dosage: UNK (BED TIME, NOT USUALLY SAME TIME AS PRISTIQ)
  3. CLARITIN ALLERGIC [Concomitant]
     Dosage: UNK, AS NEEDED (NOT USUALLY AT SAME TIME AS PRISTIQ)
  4. PRISTIQ EXTENDED-RELEASE [Interacting]
     Active Substance: DESVENLAFAXINE SUCCINATE
     Dosage: 50 MG, UNK
  5. VITAMIN D3 [Concomitant]
     Active Substance: CHOLECALCIFEROL
     Dosage: UNK (TAKE AT SAME TIME AS PRISTIQ + A.M)
  6. PRISTIQ EXTENDED-RELEASE [Interacting]
     Active Substance: DESVENLAFAXINE SUCCINATE
     Dosage: 75 MG, UNK
  7. LEVOTHYROXINE SODIUM/LIOTHYRONINE [Concomitant]
     Dosage: UNK, 1X/DAY (IN A.M.)
  8. HUMALOG [Concomitant]
     Active Substance: INSULIN LISPRO
     Indication: TYPE 2 DIABETES MELLITUS
     Dosage: UNK (2 TO 6 UNITS, SUBCUTANEOUS INJECTION PER MEAL)
     Route: 058
     Dates: start: 2014
  9. LEVEMIR [Concomitant]
     Active Substance: INSULIN DETEMIR
     Indication: TYPE 2 DIABETES MELLITUS
     Dosage: UNK, 1X/DAY (BETWEEN 28 AND 30 UNITS AT NIGHT)
     Route: 058
     Dates: start: 2008
  10. PRISTIQ EXTENDED-RELEASE [Suspect]
     Active Substance: DESVENLAFAXINE SUCCINATE
     Indication: DEPRESSION
     Dosage: 100 MG, DAILY
     Route: 048
     Dates: start: 2008

REACTIONS (10)
  - Feeling abnormal [Recovering/Resolving]
  - Crying [Recovered/Resolved]
  - Abnormal dreams [Recovered/Resolved]
  - Hyperhidrosis [Not Recovered/Not Resolved]
  - Fall [Unknown]
  - Ankle fracture [Recovered/Resolved]
  - Product dose omission [Unknown]
  - Headache [Recovering/Resolving]
  - Food interaction [Recovering/Resolving]
  - Somnolence [Not Recovered/Not Resolved]

NARRATIVE: CASE EVENT DATE: 201901
